FAERS Safety Report 5483110-X (Version None)
Quarter: 2007Q4

REPORT INFORMATION
  Report Type: 
  Country: None (occurrence: None)
  Receive Date: 20071009
  Receipt Date: 20070928
  Transmission Date: 20080405
  Serious: Yes (Hospitalization, Other)
  Sender: FDA-Public Use
  Company Number: 430076K07USA

PATIENT
  Age: 52 Year
  Sex: Male
  Weight: 81.6475 kg

DRUGS (4)
  1. NOVANTRONE [Suspect]
     Indication: MULTIPLE SCLEROSIS
     Dates: start: 20040301, end: 20050301
  2. BACLOFEN [Concomitant]
  3. NEURONTIN [Concomitant]
  4. VICODIN [Concomitant]

REACTIONS (6)
  - ACUTE MYELOID LEUKAEMIA [None]
  - ACUTE MYELOID LEUKAEMIA (IN REMISSION) [None]
  - BLOOD TEST ABNORMAL [None]
  - IMPAIRED HEALING [None]
  - STAPHYLOCOCCAL SKIN INFECTION [None]
  - WHITE BLOOD CELL COUNT DECREASED [None]
